FAERS Safety Report 7806833-3 (Version None)
Quarter: 2011Q4

REPORT INFORMATION
  Report Type: 
  Country: None (occurrence: None)
  Receive Date: 20111011
  Receipt Date: 20111005
  Transmission Date: 20120403
  Serious: Yes (Other)
  Sender: FDA-Public Use
  Company Number: JP-PFIZER INC-2011216258

PATIENT
  Age: 63 Year
  Sex: Female

DRUGS (8)
  1. ZOLPIDEM [Concomitant]
     Dosage: 10 MG, 1X/DAY
     Route: 048
     Dates: start: 20110413
  2. OPALMON [Concomitant]
     Dosage: 10 MG, 3X/DAY
     Route: 048
     Dates: start: 20060202
  3. MAGMITT [Concomitant]
     Dosage: UNK
     Route: 048
     Dates: start: 20110413
  4. LYRICA [Suspect]
     Indication: PAIN MANAGEMENT
     Dosage: 75 MG, 2X/DAY
     Route: 048
     Dates: start: 20110804, end: 20110809
  5. RETICOLAN [Concomitant]
     Dosage: 500 MG, 3X/DAY
     Route: 048
     Dates: start: 20110413
  6. DEPAS [Concomitant]
     Dosage: 0.5 MG, 2X/DAY
     Route: 048
     Dates: start: 20060202
  7. DANTRIUM [Concomitant]
     Dosage: 25 MG, 1X/DAY
     Route: 048
     Dates: start: 20060202
  8. MUCOSTA [Concomitant]
     Dosage: 100 MG, 3X/DAY
     Route: 048
     Dates: start: 20110413

REACTIONS (1)
  - ARRHYTHMIA [None]
